FAERS Safety Report 16379311 (Version 5)
Quarter: 2020Q1

REPORT INFORMATION
  Report Type: Report from Study
  Country: US (occurrence: US)
  Receive Date: 20190531
  Receipt Date: 20200226
  Transmission Date: 20200409
  Serious: Yes (Hospitalization)
  Sender: FDA-Public Use
  Company Number: US-ACTELION-A-US2019-191050

PATIENT
  Age: 43 Year
  Sex: Female

DRUGS (1)
  1. OPSUMIT [Suspect]
     Active Substance: MACITENTAN
     Indication: PULMONARY ARTERIAL HYPERTENSION
     Dosage: 10 MG, QD
     Route: 048
     Dates: start: 20181102

REACTIONS (11)
  - Urinary tract infection [Unknown]
  - Diet noncompliance [Not Recovered/Not Resolved]
  - Haemoglobin decreased [Recovering/Resolving]
  - Dyspnoea [Not Recovered/Not Resolved]
  - Respiratory failure [Recovering/Resolving]
  - Red blood cell count decreased [Recovering/Resolving]
  - Iron deficiency anaemia [Recovering/Resolving]
  - Iron binding capacity total increased [Recovering/Resolving]
  - Acute pulmonary oedema [Unknown]
  - Mean cell volume decreased [Recovering/Resolving]
  - Haematocrit decreased [Recovering/Resolving]

NARRATIVE: CASE EVENT DATE: 20200106
